FAERS Safety Report 7034421-8 (Version None)
Quarter: 2010Q4

REPORT INFORMATION
  Report Type: 
  Country: None (occurrence: None)
  Receive Date: 20101008
  Receipt Date: 20100927
  Transmission Date: 20110411
  Serious: Yes (Hospitalization)
  Sender: FDA-Public Use
  Company Number: CA-JNJFOC-20101001345

PATIENT
  Sex: Female
  Weight: 67 kg

DRUGS (5)
  1. REMICADE [Suspect]
     Indication: CROHN'S DISEASE
     Route: 042
  2. PREDNISONE [Concomitant]
  3. METHOTREXATE [Concomitant]
  4. ACTONEL [Concomitant]
  5. VITAMIN B-12 [Concomitant]

REACTIONS (3)
  - GASTRITIS [None]
  - INTESTINAL OBSTRUCTION [None]
  - SINUSITIS [None]
